FAERS Safety Report 10262750 (Version 2)
Quarter: 2014Q2

REPORT INFORMATION
  Report Type: Report from Study
  Country: US (occurrence: US)
  Receive Date: 20140626
  Receipt Date: 20140626
  Transmission Date: 20141212
  Serious: Yes (Other)
  Sender: FDA-Public Use
  Company Number: US-MYLANLABS-2013S1014337

PATIENT
  Age: 52 Year
  Sex: Female

DRUGS (3)
  1. CLOZAPINE TABLETS [Suspect]
     Indication: SCHIZOAFFECTIVE DISORDER
     Dosage: TAKING 1 + 1/2 OF 50MG DAILY.
     Route: 048
     Dates: start: 20130118, end: 20130628
  2. CLOZAPINE TABLETS [Suspect]
     Indication: SCHIZOAFFECTIVE DISORDER
     Dosage: TAKING 1 + 1/2 OF 50MG DAILY.
     Route: 048
  3. ZYPREXA [Concomitant]

REACTIONS (1)
  - Granulocytopenia [Not Recovered/Not Resolved]
